FAERS Safety Report 4943946-8 (Version None)
Quarter: 2006Q1

REPORT INFORMATION
  Report Type: 
  Country: None (occurrence: None)
  Receive Date: 20060313
  Receipt Date: 20060313
  Transmission Date: 20060701
  Serious: Yes (Hospitalization)
  Sender: FDA-Public Use
  Company Number: None

PATIENT
  Sex: Female
  Weight: 77 kg

DRUGS (2)
  1. INTERNAL RADIATION IRIDIUM-192 [Suspect]
     Indication: CERVIX CARCINOMA
     Dosage: Q WEEK   INTRACERVICAL
     Route: 019
     Dates: start: 20051111, end: 20051209
  2. CISPLATIN [Suspect]
     Dosage: Q WEEK   IV DRIP
     Route: 041

REACTIONS (2)
  - VENOUS OCCLUSION [None]
  - VENOUS THROMBOSIS [None]
